FAERS Safety Report 4703466-2 (Version None)
Quarter: 2005Q2

REPORT INFORMATION
  Report Type: 
  Country: None (occurrence: None)
  Receive Date: 20050629
  Receipt Date: 20050609
  Transmission Date: 20051028
  Serious: Yes (Death, Other)
  Sender: FDA-Public Use
  Company Number: USA021022192

PATIENT
  Sex: Male

DRUGS (8)
  1. PROZAC [Suspect]
     Indication: DEPRESSION
     Dosage: 20 MG/DAY
     Route: 048
  2. AMBIEN [Concomitant]
  3. PAXIL [Concomitant]
  4. RESTORIL [Concomitant]
  5. MAXZIDE [Concomitant]
  6. ZOCOR [Concomitant]
  7. COLCHICINE [Concomitant]
  8. CENTRUM [Concomitant]

REACTIONS (16)
  - ANXIETY [None]
  - AORTIC STENOSIS [None]
  - APATHY [None]
  - ASTHENIA [None]
  - ATRIAL FIBRILLATION [None]
  - CARDIAC FAILURE CONGESTIVE [None]
  - CARDIAC VALVE DISEASE [None]
  - DECREASED ACTIVITY [None]
  - DECREASED APPETITE [None]
  - DYSPNOEA [None]
  - HYPERHIDROSIS [None]
  - INSOMNIA [None]
  - ISCHAEMIC CARDIOMYOPATHY [None]
  - STOMACH DISCOMFORT [None]
  - TREATMENT NONCOMPLIANCE [None]
  - WEIGHT DECREASED [None]
